FAERS Safety Report 18726649 (Version 1)
Quarter: 2021Q1

REPORT INFORMATION
  Report Type: Spontaneous
  Country: IT (occurrence: IT)
  Receive Date: 20210111
  Receipt Date: 20210111
  Transmission Date: 20210419
  Serious: Yes (Other)
  Sender: FDA-Public Use
  Company Number: IT-JNJFOC-20210107257

PATIENT
  Age: 67 Year
  Sex: Female

DRUGS (3)
  1. BOSENTAN. [Suspect]
     Active Substance: BOSENTAN
     Indication: SCLERODERMA ASSOCIATED DIGITAL ULCER
     Route: 065
  2. SILDENAFIL. [Suspect]
     Active Substance: SILDENAFIL
     Indication: SCLERODERMA ASSOCIATED DIGITAL ULCER
  3. TOCILIZUMAB. [Concomitant]
     Active Substance: TOCILIZUMAB
     Indication: SCLERODERMA ASSOCIATED DIGITAL ULCER
     Dates: start: 201905

REACTIONS (4)
  - Condition aggravated [Unknown]
  - Finger amputation [Unknown]
  - Drug ineffective [Unknown]
  - Ulcer [Unknown]
